FAERS Safety Report 18428502 (Version 1)
Quarter: 2020Q4

REPORT INFORMATION
  Report Type: Spontaneous
  Country: JP (occurrence: JP)
  Receive Date: 20201026
  Receipt Date: 20201026
  Transmission Date: 20210114
  Serious: Yes (Hospitalization, Other)
  Sender: FDA-Public Use
  Company Number: JP-BAYER-2020-200772

PATIENT
  Age: 38 Year
  Sex: Female
  Weight: 62 kg

DRUGS (7)
  1. YAZ [Suspect]
     Active Substance: DROSPIRENONE\ETHINYL ESTRADIOL
     Indication: DYSMENORRHOEA
     Dosage: DAILY DOSE 1 DF
     Route: 048
     Dates: start: 20180619, end: 20180716
  2. ALLOTOP L TSUMURA [Concomitant]
     Indication: MUSCULOSKELETAL STIFFNESS
     Dosage: 3 PACKETS A DAY
     Route: 048
     Dates: start: 20180612
  3. AMERGE [Concomitant]
     Active Substance: NARATRIPTAN HYDROCHLORIDE
     Indication: HEADACHE
     Dosage: DAILY DOSE 1 DF
     Route: 048
     Dates: start: 20180619
  4. YAZ [Suspect]
     Active Substance: DROSPIRENONE\ETHINYL ESTRADIOL
     Indication: DYSMENORRHOEA
     Dosage: DAILY DOSE 1 DF
     Route: 048
     Dates: start: 20180717, end: 20190410
  5. REBAMIPIDE [Concomitant]
     Active Substance: REBAMIPIDE
     Dosage: DAILY DOSE 2 DF
     Route: 048
     Dates: start: 20181218
  6. BRUFEN [IBUPROFEN] [Concomitant]
     Active Substance: IBUPROFEN
     Indication: HEADACHE
     Dosage: DAILY DOSE 4 DF
     Route: 048
     Dates: start: 20180627
  7. NAUZELIN [Concomitant]
     Active Substance: DOMPERIDONE
     Indication: NAUSEA
     Dosage: DAILY DOSE 1 DF
     Route: 048
     Dates: start: 20180619

REACTIONS (13)
  - Phaeochromocytoma [None]
  - Chest discomfort [Recovering/Resolving]
  - Adrenal mass [None]
  - Inflammation [None]
  - Peripheral swelling [None]
  - Venous thrombosis limb [None]
  - Hepatic cyst [None]
  - Pulmonary embolism [Recovering/Resolving]
  - Blood pressure increased [None]
  - Hyperplasia adrenal [None]
  - Deep vein thrombosis [Recovering/Resolving]
  - Pain in extremity [Recovering/Resolving]
  - Adrenomegaly [None]

NARRATIVE: CASE EVENT DATE: 20190411
